FAERS Safety Report 6940259-X (Version None)
Quarter: 2010Q3

REPORT INFORMATION
  Report Type: 
  Country: None (occurrence: None)
  Receive Date: 20100820
  Receipt Date: 20100806
  Transmission Date: 20110219
  Serious: Yes (Other)
  Sender: FDA-Public Use
  Company Number: 008582

PATIENT
  Age: 82 Year
  Sex: Male

DRUGS (17)
  1. MACUGEN [Suspect]
     Indication: MACULAR DEGENERATION
     Dosage: INTRAOCULAR
     Route: 031
     Dates: start: 20091128
  2. MACUGEN [Suspect]
     Indication: MACULAR OEDEMA
     Dosage: INTRAOCULAR
     Route: 031
     Dates: start: 20091128
  3. HYZAAR [Concomitant]
  4. PANTOPRAZOLE SODIUM [Concomitant]
  5. KELTICAN N (CYTIDINE PHOSPHATE SODIUM, URIDINE TRIPHOSPHATE SODIUM) [Concomitant]
  6. NUTRITIONAL SUPPLEMENT (NUTRITIONAL SUPPLEMENT) [Concomitant]
  7. CALCIUM WITH VITAMIN D (CALCIUM PHOSPHATE, CALCIUM SODIUM LACTATE, ERG [Concomitant]
  8. MAGNESIUM (MAGNESIUM) [Concomitant]
  9. ZINC (ZINC) [Concomitant]
  10. ASPIRIN [Concomitant]
  11. TEBONIN (GINKGO BILOBA EXTRACT) [Concomitant]
  12. VIANI (FLUTICASONE PROPIONATE, SALMETEROL XINAFOATE) [Concomitant]
  13. SPIRIVA [Concomitant]
  14. VIGANTOLETTEN ^BAYER^ (COLECALCIFEROL) [Concomitant]
  15. FOSAMAX [Concomitant]
  16. IBUPROFEN [Concomitant]
  17. HYALURONATE SODIUM (HYALURONATE SODIUM) [Concomitant]

REACTIONS (1)
  - DRUG HYPERSENSITIVITY [None]
